FAERS Safety Report 8005867-6 (Version None)
Quarter: 2011Q4

REPORT INFORMATION
  Report Type: 
  Country: None (occurrence: None)
  Receive Date: 20111223
  Receipt Date: 20111219
  Transmission Date: 20120403
  Serious: Yes (Life-Threatening)
  Sender: FDA-Public Use
  Company Number: FR-ASTRAZENECA-2011SE76810

PATIENT
  Age: 59 Year
  Sex: Female

DRUGS (4)
  1. SUFENTA PRESERVATIVE FREE [Concomitant]
     Route: 042
     Dates: start: 20111110, end: 20111110
  2. CELOCURINE [Suspect]
     Route: 042
     Dates: start: 20111110, end: 20111110
  3. MIDAZOLAM HCL [Suspect]
     Route: 042
     Dates: start: 20111110, end: 20111110
  4. DIPRIVAN [Suspect]
     Route: 042
     Dates: start: 20111110, end: 20111110

REACTIONS (1)
  - ANAPHYLACTIC SHOCK [None]
